FAERS Safety Report 17696941 (Version 2)
Quarter: 2020Q4

REPORT INFORMATION
  Report Type: Report from Study
  Country: None (occurrence: US)
  Receive Date: 20200423
  Receipt Date: 20201013
  Transmission Date: 20210113
  Serious: Yes (Hospitalization)
  Sender: FDA-Public Use
  Company Number: US-ABBVIE-19K-163-3000612-00

PATIENT
  Age: 39 Year
  Sex: Female
  Weight: 72.64 kg

DRUGS (9)
  1. HUMIRA [Suspect]
     Active Substance: ADALIMUMAB
     Indication: CROHN^S DISEASE
     Route: 058
     Dates: start: 2019, end: 201912
  2. OXYCODONE [Concomitant]
     Active Substance: OXYCODONE
     Indication: PAIN
  3. ALBUTEROL. [Concomitant]
     Active Substance: ALBUTEROL
     Indication: PRODUCT USED FOR UNKNOWN INDICATION
  4. IRON [Concomitant]
     Active Substance: IRON
     Indication: ANAEMIA
  5. HUMIRA [Suspect]
     Active Substance: ADALIMUMAB
     Indication: CROHN^S DISEASE
     Route: 058
     Dates: start: 20190905
  6. HUMIRA [Suspect]
     Active Substance: ADALIMUMAB
     Route: 058
     Dates: start: 201912, end: 202002
  7. ROBAXIN [Concomitant]
     Active Substance: METHOCARBAMOL
     Indication: MUSCLE RELAXANT THERAPY
  8. PEPCID [Concomitant]
     Active Substance: FAMOTIDINE
     Indication: GASTROOESOPHAGEAL REFLUX DISEASE
  9. GABAPENTIN. [Concomitant]
     Active Substance: GABAPENTIN
     Indication: NEURALGIA

REACTIONS (22)
  - Weight decreased [Not Recovered/Not Resolved]
  - Nausea [Recovered/Resolved]
  - Enteritis [Recovered/Resolved]
  - Diarrhoea [Not Recovered/Not Resolved]
  - Abdominal pain upper [Not Recovered/Not Resolved]
  - Vomiting [Unknown]
  - Small intestinal obstruction [Recovered/Resolved]
  - Fistula discharge [Unknown]
  - Malaise [Not Recovered/Not Resolved]
  - Sepsis [Unknown]
  - Intestinal dilatation [Recovered/Resolved]
  - Malaise [Recovered/Resolved]
  - Insomnia [Not Recovered/Not Resolved]
  - Headache [Not Recovered/Not Resolved]
  - Loss of personal independence in daily activities [Not Recovered/Not Resolved]
  - Fistula [Recovered/Resolved]
  - Abdominal fat apron [Recovered/Resolved]
  - Pelvic abscess [Recovered/Resolved]
  - Pelvic inflammatory disease [Recovered/Resolved]
  - Procedural pain [Recovering/Resolving]
  - Injection site bruising [Recovered/Resolved]
  - Nausea [Unknown]

NARRATIVE: CASE EVENT DATE: 2019
